FAERS Safety Report 5148377-6 (Version None)
Quarter: 2006Q4

REPORT INFORMATION
  Report Type: 
  Country: None (occurrence: None)
  Receive Date: 20061106
  Receipt Date: 20061023
  Transmission Date: 20070319
  Serious: Yes (Life-Threatening, Hospitalization)
  Sender: FDA-Public Use
  Company Number: 2006129738

PATIENT
  Age: 84 Year
  Sex: Male

DRUGS (2)
  1. LYRICA [Suspect]
     Indication: NEURALGIA
     Dosage: 150 MG (75 MG,2 IN 1 D), ORAL
     Route: 048
     Dates: start: 20060424, end: 20060502
  2. TRAMADOL HCL [Concomitant]

REACTIONS (8)
  - ARTHRALGIA [None]
  - BLADDER DISORDER [None]
  - BLOOD CREATININE INCREASED [None]
  - CONFUSIONAL STATE [None]
  - DYSKINESIA [None]
  - FATIGUE [None]
  - PROSTATE EXAMINATION ABNORMAL [None]
  - RENAL FAILURE [None]
